FAERS Safety Report 6892195-5 (Version None)
Quarter: 2010Q3

REPORT INFORMATION
  Report Type: 
  Country: None (occurrence: None)
  Receive Date: 20100731
  Receipt Date: 20080312
  Transmission Date: 20110219
  Serious: No
  Sender: FDA-Public Use
  Company Number: US-PFIZER INC-2008024473

PATIENT
  Sex: Female
  Weight: 56.4 kg

DRUGS (5)
  1. NEURONTIN [Suspect]
     Indication: FIBROMYALGIA
     Dates: start: 19980101, end: 20060101
  2. NEURONTIN [Suspect]
     Indication: OPTIC NERVE DISORDER
  3. MEDROL [Concomitant]
  4. ESTRACE [Concomitant]
  5. SALAGEN [Concomitant]

REACTIONS (3)
  - DIZZINESS [None]
  - MIGRAINE [None]
  - WHITE BLOOD CELL DISORDER [None]
